FAERS Safety Report 18660888 (Version 1)
Quarter: 2020Q4

REPORT INFORMATION
  Report Type: Spontaneous
  Country: US (occurrence: US)
  Receive Date: 20201224
  Receipt Date: 20201224
  Transmission Date: 20210114
  Serious: No
  Sender: FDA-Public Use
  Company Number: None

PATIENT
  Age: 43 Year
  Sex: Male
  Weight: 90 kg

DRUGS (18)
  1. FAMOTIDINE. [Concomitant]
     Active Substance: FAMOTIDINE
  2. ALPHA LIPOIC ACID [Concomitant]
     Active Substance: .ALPHA.-LIPOIC ACID
  3. ESCITALOPRAM [Concomitant]
     Active Substance: ESCITALOPRAM OXALATE
  4. ESOMEPRAZOLE 20 MG DR CAP [Concomitant]
  5. ASPIRIN 81 MG EC [Concomitant]
     Active Substance: ASPIRIN
  6. MONTELUKAST [Suspect]
     Active Substance: MONTELUKAST SODIUM
     Indication: HYPERSENSITIVITY
     Dosage: ?          QUANTITY:1 TABLET(S);?
     Route: 048
     Dates: start: 20200901
  7. MONTELUKAST [Concomitant]
     Active Substance: MONTELUKAST SODIUM
  8. EPA [Concomitant]
  9. LEVOTHYROXINE. [Concomitant]
     Active Substance: LEVOTHYROXINE
  10. ROSUVASTATIN. [Concomitant]
     Active Substance: ROSUVASTATIN
  11. COENZYME Q10 [Concomitant]
     Active Substance: DIETARY SUPPLEMENT\UBIDECARENONE
  12. DHA [Concomitant]
     Active Substance: DIETARY SUPPLEMENT
  13. VALACYCLOVIR [Concomitant]
     Active Substance: VALACYCLOVIR HYDROCHLORIDE
  14. CETIRIZINE [Concomitant]
     Active Substance: CETIRIZINE HYDROCHLORIDE
  15. METFORMIN ER [Concomitant]
     Active Substance: METFORMIN HYDROCHLORIDE
  16. MONTELUKAST [Suspect]
     Active Substance: MONTELUKAST SODIUM
     Indication: ASTHMA
     Dosage: ?          QUANTITY:1 TABLET(S);?
     Route: 048
     Dates: start: 20200901
  17. FENOFIBRATE. [Concomitant]
     Active Substance: FENOFIBRATE
  18. VITAMIN D3 [Concomitant]
     Active Substance: CHOLECALCIFEROL

REACTIONS (4)
  - Withdrawal syndrome [None]
  - Sleep disorder [None]
  - Feeling abnormal [None]
  - Irritability [None]

NARRATIVE: CASE EVENT DATE: 20201214
